FAERS Safety Report 9982446 (Version 2)
Quarter: 2014Q1

REPORT INFORMATION
  Report Type: Report from Study
  Country: PR (occurrence: PR)
  Receive Date: 20140307
  Receipt Date: 20140307
  Transmission Date: 20141002
  Serious: No
  Sender: FDA-Public Use
  Company Number: PR-ABBVIE-13P-131-1042230-00

PATIENT
  Sex: Female
  Weight: 72.64 kg

DRUGS (5)
  1. HUMIRA [Suspect]
     Indication: RHEUMATOID ARTHRITIS
     Route: 058
     Dates: end: 20130124
  2. HUMIRA [Suspect]
     Indication: PSORIASIS
     Dates: start: 20130207
  3. UNKNOWN MEDICATION [Concomitant]
     Indication: DEPRESSION
     Dosage: 1 TABLET WHEN NECESSARY
     Route: 048
  4. UNKNOWN MEDICATION [Concomitant]
     Indication: ANXIETY
  5. UNKNOWN MEDICATION [Concomitant]
     Indication: HYPERTENSION
     Route: 048

REACTIONS (1)
  - Abscess [Recovered/Resolved]
